FAERS Safety Report 10530819 (Version 1)
Quarter: 2014Q4

REPORT INFORMATION
  Report Type: Spontaneous
  Country: US (occurrence: None)
  Receive Date: 20141020
  Receipt Date: 20141020
  Transmission Date: 20150528
  Serious: No
  Sender: FDA-Public Use
  Company Number: None

PATIENT
  Age: 44 Year
  Sex: Male
  Weight: 75 kg

DRUGS (1)
  1. MELOXICAM. [Suspect]
     Active Substance: MELOXICAM
     Indication: OSTEOARTHRITIS
     Dates: start: 20130306, end: 20140518

REACTIONS (2)
  - Gastrointestinal haemorrhage [None]
  - Haematemesis [None]

NARRATIVE: CASE EVENT DATE: 20140815
